FAERS Safety Report 11999611 (Version 1)
Quarter: 2016Q1

REPORT INFORMATION
  Report Type: Spontaneous
  Country: DE (occurrence: DE)
  Receive Date: 20160204
  Receipt Date: 20160204
  Transmission Date: 20160526
  Serious: Yes (Hospitalization, Congenital Anomaly, Other)
  Sender: FDA-Public Use
  Company Number: DE-AUROBINDO-AUR-APL-2016-00613

PATIENT
  Age: 1 Day
  Sex: Male
  Weight: 1.47 kg

DRUGS (7)
  1. EUTHYROX [Concomitant]
     Active Substance: LEVOTHYROXINE SODIUM
     Indication: HYPOTHYROIDISM
     Dosage: 50 ?G, UNK
     Route: 064
     Dates: start: 20141023, end: 20150609
  2. PREDNISOLON                        /00016201/ [Concomitant]
     Active Substance: PREDNISOLONE
     Indication: COAGULOPATHY
     Dosage: 10 MG, DAILY
     Route: 064
  3. DIAZEPAM. [Concomitant]
     Active Substance: DIAZEPAM
     Indication: DEPRESSION
     Route: 064
  4. VENLAFAXINE 75MG [Suspect]
     Active Substance: VENLAFAXINE HYDROCHLORIDE
     Indication: DEPRESSION
     Dosage: 75 MG, DAILY
     Route: 064
     Dates: start: 20141023, end: 20150609
  5. CLEXANE [Concomitant]
     Active Substance: ENOXAPARIN SODIUM
     Indication: COAGULOPATHY
     Dosage: 20 MG, DAILY
     Route: 064
  6. ASPIRIN. [Concomitant]
     Active Substance: ASPIRIN
     Indication: COAGULOPATHY
     Dosage: 100 MG, DAILY
     Route: 064
  7. TRENTAL [Suspect]
     Active Substance: PENTOXIFYLLINE
     Indication: COAGULOPATHY
     Dosage: 400 MG, TWO TIMES A DAY
     Route: 064

REACTIONS (5)
  - Atrial septal defect [Not Recovered/Not Resolved]
  - Respiratory disorder neonatal [Recovered/Resolved]
  - Bradycardia neonatal [Recovered/Resolved]
  - Infantile apnoea [Recovered/Resolved]
  - Foetal exposure during pregnancy [Unknown]

NARRATIVE: CASE EVENT DATE: 20150609
